FAERS Safety Report 5766327-6 (Version None)
Quarter: 2008Q2

REPORT INFORMATION
  Report Type: 
  Country: None (occurrence: None)
  Receive Date: 20080605
  Receipt Date: 20080602
  Transmission Date: 20081010
  Serious: Yes (Life-Threatening, Hospitalization)
  Sender: FDA-Public Use
  Company Number: JHP200800164

PATIENT
  Age: 48 Year
  Sex: Female

DRUGS (2)
  1. DELESTROGEN [Suspect]
     Indication: TRANSGENDER HORMONAL THERAPY
     Dosage: 30 MG, EVERY TWO WEEKS FOR 32 YEARS
  2. PROGESTERONE [Suspect]
     Indication: TRANSGENDER HORMONAL THERAPY
     Dosage: 150 MG, EVERY 2 WEEKS FOR 32 YEARS

REACTIONS (8)
  - BLOOD PRESSURE IMMEASURABLE [None]
  - CAROTID ARTERIOSCLEROSIS [None]
  - CEREBRAL INFARCTION [None]
  - CIRCULATORY COLLAPSE [None]
  - CONDITION AGGRAVATED [None]
  - PULMONARY EMBOLISM [None]
  - RESPIRATORY ACIDOSIS [None]
  - SINUS TACHYCARDIA [None]
